FAERS Safety Report 4559031-3 (Version None)
Quarter: 2005Q1

REPORT INFORMATION
  Report Type: 
  Country: None (occurrence: None)
  Receive Date: 20050124
  Receipt Date: 20050111
  Transmission Date: 20050727
  Serious: Yes (Death)
  Sender: FDA-Public Use
  Company Number: US-JNJFOC-20050103246

PATIENT
  Sex: Female
  Weight: 81.65 kg

DRUGS (9)
  1. REMICADE [Suspect]
     Route: 042
  2. REMICADE [Suspect]
     Route: 042
  3. METHOTREXATE [Concomitant]
  4. ALBUTEROL [Concomitant]
  5. CARVEDILOL [Concomitant]
     Indication: HYPERTENSION
  6. LASIX [Concomitant]
     Indication: HYPERTENSION
  7. ATROVENT [Concomitant]
  8. SYNTHROID [Concomitant]
     Indication: HYPOTHYROIDISM
  9. TYLENOL [Concomitant]

REACTIONS (1)
  - HISTOPLASMOSIS DISSEMINATED [None]
